FAERS Safety Report 21275511 (Version 2)
Quarter: 2022Q3

REPORT INFORMATION
  Report Type: Spontaneous
  Country: US (occurrence: US)
  Receive Date: 20220831
  Receipt Date: 20220916
  Transmission Date: 20221027
  Serious: No
  Sender: FDA-Public Use
  Company Number: US-009507513-2208USA010528

PATIENT
  Sex: Male
  Weight: 142.86 kg

DRUGS (2)
  1. VERQUVO [Suspect]
     Active Substance: VERICIGUAT
     Indication: Cardiac failure
     Dosage: 2.5 MILLIGRAM, DAILY
     Route: 048
     Dates: start: 20220803, end: 20220804
  2. BUMEX [Concomitant]
     Active Substance: BUMETANIDE

REACTIONS (1)
  - Palpitations [Recovered/Resolved]
